FAERS Safety Report 10712456 (Version 3)
Quarter: 2015Q1

REPORT INFORMATION
  Report Type: Spontaneous
  Country: CZ (occurrence: CZ)
  Receive Date: 20150115
  Receipt Date: 20150213
  Transmission Date: 20150721
  Serious: Yes (Hospitalization, Other)
  Sender: FDA-Public Use
  Company Number: CZ-AMGEN-CZESP2015002638

PATIENT
  Age: 62 Year
  Sex: Male

DRUGS (10)
  1. PORTORA [Concomitant]
     Dosage: UNK
  2. EGILOC [Concomitant]
     Dosage: UNK
  3. SORTIS [Concomitant]
     Active Substance: ATORVASTATIN
     Dosage: UNK
  4. ENBREL [Suspect]
     Active Substance: ETANERCEPT
     Indication: PSORIASIS
     Dosage: 50 MG, WEEKLY
     Route: 058
     Dates: start: 201012
  5. OMEPRAZOL                          /00661201/ [Concomitant]
     Active Substance: OMEPRAZOLE
     Dosage: UNK
  6. KALNORMIN [Concomitant]
     Active Substance: POTASSIUM CHLORIDE
     Dosage: UNK
  7. GODASAL [Concomitant]
     Dosage: UNK
  8. AMESOS [Concomitant]
     Dosage: UNK
  9. VIGANTOL [Concomitant]
  10. VIGANTOL                           /00318501/ [Concomitant]
     Dosage: UNK

REACTIONS (4)
  - IgA nephropathy [Unknown]
  - Nephrotic syndrome [Unknown]
  - Listeria sepsis [Recovered/Resolved]
  - Anaemia [Unknown]

NARRATIVE: CASE EVENT DATE: 2014
